FAERS Safety Report 5931376-1 (Version None)
Quarter: 2008Q4

REPORT INFORMATION
  Report Type: 
  Country: None (occurrence: None)
  Receive Date: 20081027
  Receipt Date: 20081013
  Transmission Date: 20090506
  Serious: Yes (Hospitalization)
  Sender: FDA-Public Use
  Company Number: PHHO2007BE07657

PATIENT
  Sex: Female
  Weight: 70.2 kg

DRUGS (2)
  1. ACLASTA/ZOLEDRONATE T29581+A++PD [Suspect]
     Indication: OSTEITIS DEFORMANS
     Dosage: 5 MG
     Route: 042
     Dates: start: 20061006, end: 20061018
  2. DIURETICS [Concomitant]

REACTIONS (2)
  - HIP FRACTURE [None]
  - OSTEOSYNTHESIS [None]
